FAERS Safety Report 9775779 (Version 3)
Quarter: 2014Q1

REPORT INFORMATION
  Report Type: Spontaneous
  Country: PT (occurrence: PT)
  Receive Date: 20131220
  Receipt Date: 20140313
  Transmission Date: 20141002
  Serious: Yes (Life-Threatening, Hospitalization)
  Sender: FDA-Public Use
  Company Number: PT-B.I. PHARMACEUTICALS,INC./RIDGEFIELD-2013-BI-43125PO

PATIENT
  Age: 79 Year
  Sex: Female

DRUGS (9)
  1. PRADAXA [Suspect]
     Indication: ATRIAL FIBRILLATION
     Dosage: 220 MG
     Route: 048
     Dates: start: 20131108, end: 20131217
  2. COAPROVEL 300/12.5 /IRBESARTAN + HYDROCHLOROTHIAZIDE [Concomitant]
     Dosage: 1 ANZ
     Route: 048
  3. DAFLON 500 / FLAVONOIDS [Concomitant]
     Dosage: 500 MG
     Route: 048
  4. HALCION / TRIAZOLAM [Concomitant]
     Dosage: 0.25 MG
     Route: 048
  5. BISOPROLOL [Concomitant]
     Dosage: 10 MG
     Route: 048
     Dates: start: 20131108
  6. DIGOXIN 0.125MG [Concomitant]
     Dosage: 0.125 MG
     Route: 048
     Dates: start: 20131108
  7. ATORVASTATIN 10 [Concomitant]
     Dosage: 10 MG
     Route: 048
     Dates: start: 20131108
  8. AMINES [Concomitant]
     Indication: INFARCTION
     Route: 065
  9. HEPARIN AND TROMBOLYTIC DRUGS [Concomitant]
     Indication: INFARCTION
     Route: 065

REACTIONS (5)
  - Acute myocardial infarction [Not Recovered/Not Resolved]
  - Post procedural haemorrhage [Not Recovered/Not Resolved]
  - Shock haemorrhagic [Recovered/Resolved]
  - Cardiogenic shock [Not Recovered/Not Resolved]
  - Ecchymosis [Not Recovered/Not Resolved]
